FAERS Safety Report 12627959 (Version 1)
Quarter: 2016Q3

REPORT INFORMATION
  Report Type: Spontaneous
  Country: US (occurrence: US)
  Receive Date: 20160807
  Receipt Date: 20160807
  Transmission Date: 20161109
  Serious: Yes (Other)
  Sender: FDA-Public Use
  Company Number: US-BEH-2016072084

PATIENT
  Age: 32 Year
  Sex: Female
  Weight: 89.34 kg

DRUGS (14)
  1. CEFTRIAXONE. [Concomitant]
     Active Substance: CEFTRIAXONE
  2. MEPRON                             /00049601/ [Concomitant]
  3. LIDOCAINE. [Concomitant]
     Active Substance: LIDOCAINE
  4. XANAX [Concomitant]
     Active Substance: ALPRAZOLAM
  5. VITAMIN B12 [Concomitant]
     Active Substance: CYANOCOBALAMIN
  6. IBUPROFEN. [Concomitant]
     Active Substance: IBUPROFEN
  7. ACETAMINOPHEN. [Concomitant]
     Active Substance: ACETAMINOPHEN
  8. L-METHYLFOLATE CALCIUM [Concomitant]
     Active Substance: LEVOMEFOLATE CALCIUM
  9. METRONIDAZOLE. [Concomitant]
     Active Substance: METRONIDAZOLE
  10. HIZENTRA [Suspect]
     Active Substance: HUMAN IMMUNOGLOBULIN G
     Indication: SELECTIVE IGG SUBCLASS DEFICIENCY
     Dosage: 10 G, QW
     Route: 058
     Dates: start: 20151222
  11. EPIPEN [Concomitant]
     Active Substance: EPINEPHRINE
  12. DIFLUCAN [Concomitant]
     Active Substance: FLUCONAZOLE
  13. PROBIOTICS [Concomitant]
     Active Substance: PROBIOTICS NOS
  14. DIPHENHYDRAMINE. [Concomitant]
     Active Substance: DIPHENHYDRAMINE

REACTIONS (1)
  - Gastroenteritis viral [Unknown]

NARRATIVE: CASE EVENT DATE: 201603
